FAERS Safety Report 4658433-4 (Version None)
Quarter: 2005Q2

REPORT INFORMATION
  Report Type: 
  Country: None (occurrence: None)
  Receive Date: 20050509
  Receipt Date: 20050426
  Transmission Date: 20051028
  Serious: Yes (Hospitalization)
  Sender: FDA-Public Use
  Company Number: 2005066604

PATIENT

DRUGS (2)
  1. CELEBREX [Suspect]
     Indication: LIMB INJURY
     Dates: end: 20000701
  2. ROFECOXIB [Suspect]
     Indication: LIMB INJURY
     Dates: end: 20000701

REACTIONS (1)
  - CROHN'S DISEASE [None]
